FAERS Safety Report 13102872 (Version 10)
Quarter: 2018Q1

REPORT INFORMATION
  Report Type: Report from Study
  Country: US (occurrence: US)
  Receive Date: 20170110
  Receipt Date: 20180206
  Transmission Date: 20180508
  Serious: Yes (Hospitalization)
  Sender: FDA-Public Use
  Company Number: US-ACTELION-A-US2017-148009

PATIENT
  Age: 80 Year
  Sex: Female
  Weight: 51.25 kg

DRUGS (5)
  1. OXYGEN. [Concomitant]
     Active Substance: OXYGEN
     Dosage: 3 L/MIN, UNK
  2. TRACLEER [Suspect]
     Active Substance: BOSENTAN
     Indication: PULMONARY HYPERTENSION
     Dosage: 125 MG, BID
     Route: 048
  3. TRACLEER [Suspect]
     Active Substance: BOSENTAN
     Dosage: 62.5 MG, BID
     Route: 048
     Dates: start: 20150707
  4. ADEMPAS [Concomitant]
     Active Substance: RIOCIGUAT
     Dosage: 2.5 MG, TID
  5. BUMEX [Concomitant]
     Active Substance: BUMETANIDE
     Dosage: 2 MG, UNK

REACTIONS (18)
  - Oedema peripheral [Unknown]
  - Wound treatment [Unknown]
  - Skin ulcer [Unknown]
  - Arthritis infective [Unknown]
  - Blister [Unknown]
  - Post procedural complication [Unknown]
  - Fluid retention [Unknown]
  - Dyspnoea [Unknown]
  - Nasal discomfort [Unknown]
  - Cardiac failure congestive [Unknown]
  - Loss of consciousness [Recovered/Resolved]
  - Seizure [Unknown]
  - Skin infection [Unknown]
  - Joint effusion [Unknown]
  - Fatigue [Unknown]
  - Sepsis [Recovered/Resolved]
  - Localised infection [Unknown]
  - Weight increased [Unknown]

NARRATIVE: CASE EVENT DATE: 201610
